FAERS Safety Report 4499046-7 (Version None)
Quarter: 2004Q4

REPORT INFORMATION
  Report Type: 
  Country: None (occurrence: None)
  Receive Date: 20041110
  Receipt Date: 20041110
  Transmission Date: 20050328
  Serious: Yes (Life-Threatening)
  Sender: FDA-Public Use
  Company Number: None

PATIENT
  Age: 82 Year
  Sex: Male

DRUGS (2)
  1. REMICADE [Suspect]
     Indication: RHEUMATOID ARTHRITIS
     Dosage: 400 MG IV
     Route: 042
     Dates: start: 20001001, end: 20011120
  2. ARAVA [Suspect]
     Dates: start: 20020401, end: 20040107

REACTIONS (4)
  - DIFFUSE LARGE B-CELL LYMPHOMA [None]
  - DISEASE RECURRENCE [None]
  - EPSTEIN-BARR VIRUS INFECTION [None]
  - IMMUNOSUPPRESSION [None]
